FAERS Safety Report 4472725-3 (Version None)
Quarter: 2004Q4

REPORT INFORMATION
  Report Type: 
  Country: None (occurrence: None)
  Receive Date: 20041013
  Receipt Date: 20040930
  Transmission Date: 20050328
  Serious: Yes (Other)
  Sender: FDA-Public Use
  Company Number: PHEH2004US10565

PATIENT
  Age: 56 Year
  Sex: Female

DRUGS (8)
  1. ZELNORM [Suspect]
     Indication: IRRITABLE BOWEL SYNDROME
     Dosage: 1/2 TAB, ONCE/SINGLE
     Route: 048
     Dates: start: 20040923, end: 20040923
  2. LEVOXYL [Concomitant]
  3. FLUOXETINE [Concomitant]
  4. NEURONTIN [Concomitant]
  5. CALAN [Concomitant]
  6. WELLBUTRIN [Concomitant]
  7. AVINZA [Concomitant]
  8. MORPHINE SULFATE [Concomitant]
     Indication: BACK INJURY

REACTIONS (5)
  - ABNORMAL FAECES [None]
  - FAECES DISCOLOURED [None]
  - INTESTINAL FUNCTIONAL DISORDER [None]
  - JAUNDICE [None]
  - STOOLS WATERY [None]
